FAERS Safety Report 17575079 (Version 2)
Quarter: 2020Q1

REPORT INFORMATION
  Report Type: Spontaneous
  Country: CA (occurrence: CA)
  Receive Date: 20200324
  Receipt Date: 20200327
  Transmission Date: 20200409
  Serious: Yes (Disabling, Other)
  Sender: FDA-Public Use
  Company Number: CA-TEVA-2020-CA-1212097

PATIENT
  Age: 50 Year
  Sex: Male

DRUGS (2)
  1. TEVA-HYDROCHLOROTHIAZIDE [Interacting]
     Active Substance: HYDROCHLOROTHIAZIDE
     Indication: HYPERTENSION
     Route: 048
  2. FOSINOPRIL [Suspect]
     Active Substance: FOSINOPRIL
     Indication: HYPERTENSION
     Route: 048

REACTIONS (4)
  - Ischaemia [Unknown]
  - Potentiating drug interaction [Unknown]
  - Hypoperfusion [Unknown]
  - Blindness [Unknown]
